FAERS Safety Report 6429387-5 (Version None)
Quarter: 2009Q4

REPORT INFORMATION
  Report Type: 
  Country: None (occurrence: None)
  Receive Date: 20091105
  Receipt Date: 20090731
  Transmission Date: 20100525
  Serious: No
  Sender: FDA-Public Use
  Company Number: US-ABBOTT-09P-163-0560981-00

PATIENT
  Age: 26 Year
  Sex: Female

DRUGS (4)
  1. KALETRA [Suspect]
     Indication: DRUG USE FOR UNKNOWN INDICATION
     Dosage: FORM: 800/200 MILLIGRAMS
     Route: 048
     Dates: start: 20090107, end: 20090119
  2. KALETRA [Suspect]
     Dates: start: 20090126
  3. COMBIVIR [Suspect]
     Indication: DRUG USE FOR UNKNOWN INDICATION
     Dosage: FORM: 600/XXX
     Route: 064
     Dates: start: 20090107, end: 20090119
  4. COMBIVIR [Suspect]
     Dates: start: 20090126

REACTIONS (2)
  - CHLAMYDIAL INFECTION [None]
  - VAGINITIS BACTERIAL [None]
